FAERS Safety Report 19961807 (Version 1)
Quarter: 2021Q4

REPORT INFORMATION
  Report Type: Report from Study
  Country: BR (occurrence: BR)
  Receive Date: 20211018
  Receipt Date: 20211018
  Transmission Date: 20220303
  Serious: Yes (Other)
  Sender: FDA-Public Use
  Company Number: BR-NOVARTISPH-NVSC2021BR227487

PATIENT
  Age: 63 Year
  Sex: Female
  Weight: 110 kg

DRUGS (2)
  1. DIOVAN [Suspect]
     Active Substance: VALSARTAN
     Indication: Hypertension
     Dosage: 1 DF, QD
     Route: 048
     Dates: start: 2006
  2. AZITHROMYCIN ANHYDROUS [Suspect]
     Active Substance: AZITHROMYCIN ANHYDROUS
     Indication: COVID-19
     Dosage: 1 DF, QD (STOPPED AFTER ONE MONTH, APPROXIMATELY)
     Route: 048
     Dates: start: 202012

REACTIONS (8)
  - Malaise [Recovered/Resolved]
  - Illness [Recovering/Resolving]
  - Gait disturbance [Recovering/Resolving]
  - Musculoskeletal discomfort [Recovering/Resolving]
  - Malaise [Recovered/Resolved]
  - Feeling abnormal [Recovered/Resolved]
  - Nervousness [Not Recovered/Not Resolved]
  - COVID-19 [Recovering/Resolving]

NARRATIVE: CASE EVENT DATE: 20201201
